FAERS Safety Report 8718389 (Version 3)
Quarter: 2012Q4

REPORT INFORMATION
  Report Type: 
  Country: US (occurrence: US)
  Receive Date: 20120810
  Receipt Date: 20121029
  Transmission Date: 20130627
  Serious: Yes (Other)
  Sender: FDA-Public Use
  Company Number: US-PFIZER INC-2012192096

PATIENT
  Age: 44 Year
  Sex: Male
  Weight: 82.09 kg

DRUGS (4)
  1. VIAGRA [Suspect]
     Indication: ERECTILE DYSFUNCTION
     Dosage: UNK
     Route: 048
  2. CAVERJECT [Suspect]
     Indication: ERECTILE DYSFUNCTION
     Dosage: 20 ug,  every other day
     Dates: start: 201110
  3. CIALIS [Suspect]
     Indication: ERECTILE DYSFUNCTION
     Dosage: UNK
     Route: 048
  4. TRIAZOLAM [Concomitant]
     Indication: CHRONIC INSOMNIA
     Dosage: 0.125 mg, 1x/day
     Route: 048
     Dates: start: 2012

REACTIONS (5)
  - Drug hypersensitivity [Unknown]
  - Visual impairment [Unknown]
  - Chest pain [Unknown]
  - Urinary retention [Unknown]
  - Surgery [Unknown]
